FAERS Safety Report 5775108-9 (Version None)
Quarter: 2008Q2

REPORT INFORMATION
  Report Type: 
  Country: None (occurrence: None)
  Receive Date: 20080617
  Receipt Date: 20080610
  Transmission Date: 20081010
  Serious: Yes (Other)
  Sender: FDA-Public Use
  Company Number: JP-ASTRAZENECA-2008AP04515

PATIENT
  Sex: Female

DRUGS (2)
  1. IRESSA [Suspect]
     Indication: NON-SMALL CELL LUNG CANCER
     Route: 048
     Dates: start: 20080301, end: 20080501
  2. WARFARIN SODIUM [Concomitant]
     Dosage: UNKNOWN DOSE
     Route: 048

REACTIONS (2)
  - DRUG LEVEL INCREASED [None]
  - MALAISE [None]
